FAERS Safety Report 14999426 (Version 1)
Quarter: 2018Q2

REPORT INFORMATION
  Report Type: Spontaneous
  Country: US (occurrence: US)
  Receive Date: 20180612
  Receipt Date: 20180612
  Transmission Date: 20180711
  Serious: No
  Sender: FDA-Public Use
  Company Number: US-PFIZER INC-2018237960

PATIENT
  Age: 61 Year
  Sex: Female

DRUGS (1)
  1. XELJANZ XR [Suspect]
     Active Substance: TOFACITINIB CITRATE
     Dosage: 11 MG, UNK (#30)
     Dates: start: 20180608, end: 20180608

REACTIONS (2)
  - Peripheral venous disease [Unknown]
  - Breast mass [Unknown]

NARRATIVE: CASE EVENT DATE: 20180608
